FAERS Safety Report 20636095 (Version 1)
Quarter: 2022Q1

REPORT INFORMATION
  Report Type: Spontaneous
  Country: US (occurrence: None)
  Receive Date: 20220324
  Receipt Date: 20220324
  Transmission Date: 20220423
  Serious: Yes (Hospitalization)
  Sender: FDA-Public Use
  Company Number: None

PATIENT
  Age: 62 Year
  Sex: Female
  Weight: 54.6 kg

DRUGS (22)
  1. ANAKINRA [Suspect]
     Active Substance: ANAKINRA
  2. CREON [Concomitant]
     Active Substance: PANCRELIPASE AMYLASE\PANCRELIPASE LIPASE\PANCRELIPASE PROTEASE
     Dates: start: 20211223
  3. SCOPOLAMINE [Concomitant]
     Active Substance: SCOPOLAMINE
     Dates: start: 20211112
  4. LOMOTIL [Concomitant]
     Active Substance: ATROPINE SULFATE\DIPHENOXYLATE HYDROCHLORIDE
     Dates: start: 20211223
  5. Motoprolol [Concomitant]
  6. ONDANSETRON [Concomitant]
     Active Substance: ONDANSETRON
     Dates: start: 20220128
  7. MAGNESIUM OXIDE [Concomitant]
     Active Substance: MAGNESIUM OXIDE
     Dates: start: 20220203
  8. MAGNESIUM SULFATE [Concomitant]
     Active Substance: MAGNESIUM SULFATE
     Dates: start: 20220127, end: 20220127
  9. MAGNESIUM SULFATE [Concomitant]
     Active Substance: MAGNESIUM SULFATE
     Dates: start: 20220214, end: 20220214
  10. MAGNESIUM SULFATE [Concomitant]
     Active Substance: MAGNESIUM SULFATE
     Dates: start: 20220221, end: 20220221
  11. MAGNESIUM SULFATE [Concomitant]
     Active Substance: MAGNESIUM SULFATE
     Dates: start: 20220223, end: 20220223
  12. MAGNESIUM SULFATE [Concomitant]
     Active Substance: MAGNESIUM SULFATE
     Dates: start: 20220302, end: 20220302
  13. MAGNESIUM SULFATE [Concomitant]
     Active Substance: MAGNESIUM SULFATE
     Dates: start: 20220308, end: 20220308
  14. MAGNESIUM SULFATE [Concomitant]
     Active Substance: MAGNESIUM SULFATE
     Dates: start: 20220314, end: 20220314
  15. ELIQUIS [Concomitant]
     Active Substance: APIXABAN
     Dates: start: 20220314
  16. TPN 3-in-1 [Concomitant]
     Dates: start: 20220311
  17. ACETAMINOPHEN [Concomitant]
     Active Substance: ACETAMINOPHEN
     Dates: start: 20220310
  18. IBUPROFEN [Concomitant]
     Active Substance: IBUPROFEN
     Dates: start: 20220310
  19. GEMCITABINE [Suspect]
     Active Substance: GEMCITABINE
  20. PACLITAXEL [Suspect]
     Active Substance: PACLITAXEL
  21. CISPLATIN [Suspect]
     Active Substance: CISPLATIN
  22. HEPARIN [Suspect]
     Active Substance: HEPARIN SODIUM

REACTIONS (5)
  - Deep vein thrombosis [None]
  - Tachycardia [None]
  - Pulmonary embolism [None]
  - Epistaxis [None]
  - Rectal haemorrhage [None]

NARRATIVE: CASE EVENT DATE: 20220318
